FAERS Safety Report 7944168-9 (Version None)
Quarter: 2011Q4

REPORT INFORMATION
  Report Type: 
  Country: None (occurrence: None)
  Receive Date: 20111129
  Receipt Date: 20111115
  Transmission Date: 20120403
  Serious: Yes (Other)
  Sender: FDA-Public Use
  Company Number: JO-BIOGENIDEC-2011BI025684

PATIENT
  Age: 47 Year
  Sex: Female

DRUGS (4)
  1. AMARYL [Concomitant]
  2. TYSABRI [Suspect]
     Indication: RELAPSING-REMITTING MULTIPLE SCLEROSIS
     Route: 042
     Dates: start: 20110418, end: 20110613
  3. TYSABRI [Suspect]
     Route: 042
     Dates: start: 20110919
  4. GLUCOPHAGE [Concomitant]

REACTIONS (1)
  - PSYCHOSOMATIC DISEASE [None]
